FAERS Safety Report 7147997-7 (Version None)
Quarter: 2010Q4

REPORT INFORMATION
  Report Type: 
  Country: None (occurrence: None)
  Receive Date: 20101206
  Receipt Date: 20101206
  Transmission Date: 20110411
  Serious: Yes (Death)
  Sender: FDA-Public Use
  Company Number: None

PATIENT
  Age: 66 Year
  Sex: Female

DRUGS (1)
  1. PROPOXYPHENE NAPSYLATE AND ACETAMINOPHEN [Suspect]
     Indication: PAIN
     Dosage: PO
     Route: 048
     Dates: start: 20091102, end: 20101118

REACTIONS (2)
  - CARDIO-RESPIRATORY ARREST [None]
  - PRODUCT QUALITY ISSUE [None]
